FAERS Safety Report 9494034 (Version 1)
Quarter: 2013Q3

REPORT INFORMATION
  Report Type: Spontaneous
  Country: US (occurrence: None)
  Receive Date: 20130829
  Receipt Date: 20130829
  Transmission Date: 20140515
  Serious: No
  Sender: FDA-Public Use
  Company Number: None

PATIENT
  Age: 64 Year
  Sex: Male

DRUGS (1)
  1. NEXAVAR [Suspect]
     Indication: HEPATIC CANCER
     Route: 048
     Dates: start: 20130228

REACTIONS (3)
  - Weight decreased [None]
  - Insomnia [None]
  - Pelvic pain [None]
